FAERS Safety Report 6446863-X (Version None)
Quarter: 2009Q4

REPORT INFORMATION
  Report Type: 
  Country: None (occurrence: None)
  Receive Date: 20091119
  Receipt Date: 20091116
  Transmission Date: 20100525
  Serious: Yes (Hospitalization)
  Sender: FDA-Public Use
  Company Number: US-BRISTOL-MYERS SQUIBB COMPANY-14859029

PATIENT
  Age: 60 Year
  Sex: Male
  Weight: 86 kg

DRUGS (2)
  1. ABILIFY [Suspect]
     Indication: BIPOLAR DISORDER
  2. CYMBALTA [Suspect]
     Indication: BIPOLAR DISORDER
     Dosage: APPROXIMATELY 2.5 WEEKS AGO

REACTIONS (2)
  - BALANCE DISORDER [None]
  - DISORIENTATION [None]
